FAERS Safety Report 8581190-6 (Version None)
Quarter: 2012Q3

REPORT INFORMATION
  Report Type: 
  Country: None (occurrence: None)
  Receive Date: 20120809
  Receipt Date: 20120731
  Transmission Date: 20120928
  Serious: Yes (Hospitalization, Other)
  Sender: FDA-Public Use
  Company Number: US-BAYER-2012-078615

PATIENT
  Age: 39 Year
  Sex: Female

DRUGS (10)
  1. YAZ [Suspect]
     Indication: MENSTRUAL CYCLE MANAGEMENT
  2. DROSPIRENONE AND ETHINYL ESTRADIOL [Suspect]
  3. ZOLOFT [Concomitant]
     Indication: DEPRESSION
  4. BUTALBITAL ACETAMINOPHEN AND CAFFEINE [Concomitant]
     Dosage: 325-4 MG
     Dates: start: 20110808, end: 20111123
  5. ULTRAM [Concomitant]
  6. FIORICET [Concomitant]
  7. ZOLOFT [Concomitant]
     Indication: ANXIETY
  8. AMBIEN [Concomitant]
  9. LORAZEPAM [Concomitant]
     Dosage: 1 MG, UNK
     Dates: start: 20111004
  10. SERTRALINE HYDROCHLORIDE [Concomitant]
     Dosage: 100 MG, UNK
     Dates: start: 20110601, end: 20111205

REACTIONS (3)
  - PULMONARY EMBOLISM [None]
  - THROMBOSIS [None]
  - DEEP VEIN THROMBOSIS [None]
